FAERS Safety Report 24210506 (Version 1)
Quarter: 2024Q3

REPORT INFORMATION
  Report Type: Spontaneous
  Country: US (occurrence: None)
  Receive Date: 20240813
  Receipt Date: 20240813
  Transmission Date: 20241017
  Serious: Yes (Hospitalization)
  Sender: Public
  Company Number: None

PATIENT
  Age: 2 Year
  Sex: Female

DRUGS (4)
  1. LEVOTHYROXINE [Suspect]
     Active Substance: LEVOTHYROXINE\LEVOTHYROXINE SODIUM
  2. HYDROCORTISONE [Suspect]
     Active Substance: HYDROCORTISONE\HYDROCORTISONE ACETATE
  3. CYPROHEPTADINE [Suspect]
     Active Substance: CYPROHEPTADINE
  4. VITAMINS [Suspect]
     Active Substance: VITAMINS

REACTIONS (2)
  - Blood glucose decreased [None]
  - Growth hormone deficiency [None]
